FAERS Safety Report 4795449-1 (Version None)
Quarter: 2005Q4

REPORT INFORMATION
  Report Type: 
  Country: None (occurrence: None)
  Receive Date: 20051006
  Receipt Date: 20050919
  Transmission Date: 20060501
  Serious: Yes (Disabling)
  Sender: FDA-Public Use
  Company Number: ENT 2005-0127

PATIENT
  Age: 65 Year
  Sex: Male

DRUGS (2)
  1. COMTAN [Suspect]
     Indication: PARKINSON'S DISEASE
     Dosage: 1 TABLET QID ORAL
     Route: 048
     Dates: start: 20050301
  2. SINEMET [Concomitant]

REACTIONS (3)
  - FALL [None]
  - FREEZING PHENOMENON [None]
  - HOT FLUSH [None]
